FAERS Safety Report 9422015 (Version 2)
Quarter: 2013Q3

REPORT INFORMATION
  Report Type: Spontaneous
  Country: FR (occurrence: FR)
  Receive Date: 20130726
  Receipt Date: 20130807
  Transmission Date: 20140515
  Serious: Yes (Disabling)
  Sender: FDA-Public Use
  Company Number: FR-B.I. PHARMACEUTICALS,INC./RIDGEFIELD-2013-FF-01919FF

PATIENT
  Age: 77 Year
  Sex: Male
  Weight: 100.1 kg

DRUGS (2)
  1. PRADAXA [Suspect]
     Indication: THROMBOSIS PROPHYLAXIS
     Dosage: 220 MG
     Route: 048
  2. PRADAXA [Suspect]
     Dosage: 150 MG
     Route: 048

REACTIONS (2)
  - Pulmonary embolism [Recovered/Resolved with Sequelae]
  - Phlebitis [Recovered/Resolved with Sequelae]
